FAERS Safety Report 5551543-9 (Version None)
Quarter: 2007Q4

REPORT INFORMATION
  Report Type: 
  Country: None (occurrence: None)
  Receive Date: 20071212
  Receipt Date: 20071203
  Transmission Date: 20080405
  Serious: Yes (Death)
  Sender: FDA-Public Use
  Company Number: US-SANOFI-SYNTHELABO-A03200706777

PATIENT
  Age: 69 Year
  Sex: Male

DRUGS (6)
  1. COLCHICINE [Suspect]
     Dosage: UNK
     Route: 065
  2. PREDNISONE [Suspect]
     Dosage: UNK
     Route: 065
  3. CYTOXAN [Suspect]
     Dosage: UNK
     Route: 065
  4. REMICADE [Suspect]
     Indication: VASCULITIS
     Dosage: UNK
     Route: 042
  5. REMICADE [Suspect]
     Indication: RHEUMATOID ARTHRITIS
     Dosage: UNK
     Route: 042
  6. PLAQUENIL [Suspect]
     Indication: DRUG USE FOR UNKNOWN INDICATION
     Dosage: UNK
     Route: 048

REACTIONS (10)
  - APHASIA [None]
  - ASTHENIA [None]
  - CEREBROVASCULAR ACCIDENT [None]
  - CONFUSIONAL STATE [None]
  - DEMYELINATION [None]
  - DYSARTHRIA [None]
  - HEMIPARESIS [None]
  - MULTI-ORGAN FAILURE [None]
  - NERVOUS SYSTEM DISORDER [None]
  - RESPIRATORY DISTRESS [None]
